FAERS Safety Report 5970282-3 (Version None)
Quarter: 2008Q4

REPORT INFORMATION
  Report Type: 
  Country: None (occurrence: None)
  Receive Date: 20081126
  Receipt Date: 20081121
  Transmission Date: 20090506
  Serious: Yes (Other)
  Sender: FDA-Public Use
  Company Number: US-GENENTECH-272229

PATIENT
  Sex: Male
  Weight: 58.957 kg

DRUGS (2)
  1. AVASTIN [Suspect]
     Indication: COLON CANCER
     Dosage: 320 MG, Q2W
     Route: 042
     Dates: start: 20080409, end: 20081008
  2. IRINOTECAN HYDROCHLORIDE [Concomitant]
     Indication: DRUG USE FOR UNKNOWN INDICATION
     Dosage: 210 MG, UNK
     Dates: start: 20080210

REACTIONS (2)
  - VASCULAR GRAFT COMPLICATION [None]
  - VASCULAR PSEUDOANEURYSM [None]
